FAERS Safety Report 9249576 (Version 1)
Quarter: 2013Q2

REPORT INFORMATION
  Report Type: Spontaneous
  Country: US (occurrence: US)
  Receive Date: 20130423
  Receipt Date: 20130423
  Transmission Date: 20140414
  Serious: Yes (Other)
  Sender: FDA-Public Use
  Company Number: CHPA2013US006785

PATIENT
  Age: 63 Year
  Sex: Male

DRUGS (1)
  1. MYOFLEX ANALGESIC CREME [Suspect]
     Indication: ARTHRALGIA
     Dosage: UNK, UNK
     Route: 061
     Dates: start: 201301, end: 20130417

REACTIONS (2)
  - Upper respiratory tract infection [Recovered/Resolved]
  - Expired drug administered [Unknown]
